FAERS Safety Report 4835532-5 (Version None)
Quarter: 2005Q4

REPORT INFORMATION
  Report Type: 
  Country: None (occurrence: None)
  Receive Date: 20051121
  Receipt Date: 20051107
  Transmission Date: 20060501
  Serious: Yes (Other)
  Sender: FDA-Public Use
  Company Number: 2005154804

PATIENT
  Age: 27 Year
  Sex: Male
  Weight: 74.8435 kg

DRUGS (4)
  1. CELEBREX [Suspect]
     Indication: NECK PAIN
     Dosage: 200 MG ( 200 MG, 1 IN 1 D)
     Dates: start: 20050101, end: 20050701
  2. PREDNISONE [Suspect]
     Indication: SERUM SICKNESS
     Dosage: 20 MG
     Dates: start: 20050804
  3. FLEXERIL [Concomitant]
  4. ULTRACET [Concomitant]

REACTIONS (13)
  - ARTHRALGIA [None]
  - C-REACTIVE PROTEIN INCREASED [None]
  - DRUG HYPERSENSITIVITY [None]
  - IRON DEFICIENCY [None]
  - JOINT SWELLING [None]
  - LEUKOCYTOSIS [None]
  - OEDEMA PERIPHERAL [None]
  - PAIN IN EXTREMITY [None]
  - POLYARTHRITIS [None]
  - RASH PAPULAR [None]
  - RED BLOOD CELL SEDIMENTATION RATE INCREASED [None]
  - SERUM SICKNESS [None]
  - THROMBOCYTHAEMIA [None]
